FAERS Safety Report 15435470 (Version 1)
Quarter: 2018Q3

REPORT INFORMATION
  Report Type: Spontaneous
  Country: US (occurrence: US)
  Receive Date: 20180927
  Receipt Date: 20180927
  Transmission Date: 20181010
  Serious: No
  Sender: FDA-Public Use
  Company Number: US-BAYER-2018-179537

PATIENT
  Age: 73 Year
  Sex: Female
  Weight: 100 kg

DRUGS (2)
  1. VITAMIN C [ASCORBIC ACID] [Concomitant]
     Dosage: UNK
  2. ALEVE [Suspect]
     Active Substance: NAPROXEN SODIUM
     Indication: PAIN
     Dosage: UNK, 2 TABLETS IN THE MORNING
     Route: 048

REACTIONS (1)
  - Drug ineffective [Unknown]
